FAERS Safety Report 4688090-2 (Version None)
Quarter: 2005Q2

REPORT INFORMATION
  Report Type: 
  Country: None (occurrence: None)
  Receive Date: 20050609
  Receipt Date: 20050527
  Transmission Date: 20051028
  Serious: Yes (Other)
  Sender: FDA-Public Use
  Company Number: 2005081456

PATIENT
  Age: 71 Year
  Sex: Female
  Weight: 76.6579 kg

DRUGS (15)
  1. CELEBREX [Suspect]
     Indication: ARTHRITIS
  2. NORVASC [Concomitant]
  3. AMOXICILLIN [Concomitant]
  4. BEXTRA [Concomitant]
  5. LABETALOL HCL [Concomitant]
  6. LEVOTHROID [Concomitant]
  7. HYDROCHLOROTHIAZIDE [Concomitant]
  8. FAMOTIDINE [Concomitant]
  9. CALCIUM (CALCIUM) [Concomitant]
  10. CHONDROITIN/GLUCOSAMINE (CHONDROITIN, GLUCOSAMINE) [Concomitant]
  11. FLAXSEED OIL (LINSEED OIL) [Concomitant]
  12. VITAMIN E [Concomitant]
  13. PRAVACHOL [Concomitant]
  14. ALL OTHER THERAPEUTIC PRODUCTS (ALL OTHER THERAPEUTIC PRODUCTS) [Concomitant]
  15. ASPIRIN [Concomitant]

REACTIONS (5)
  - BODY HEIGHT DECREASED [None]
  - HYPERSENSITIVITY [None]
  - MASTECTOMY [None]
  - POLYARTHRITIS [None]
  - SWELLING FACE [None]
